FAERS Safety Report 23646191 (Version 2)
Quarter: 2024Q3

REPORT INFORMATION
  Report Type: Report from Study
  Country: US (occurrence: US)
  Receive Date: 20240319
  Receipt Date: 20240830
  Transmission Date: 20241016
  Serious: Yes (Other)
  Sender: TAKEDA
  Company Number: US-TAKEDA-2024TUS024060

PATIENT
  Age: 24 Year
  Sex: Female

DRUGS (2)
  1. VONICOG ALFA [Suspect]
     Active Substance: VONICOG ALFA
     Indication: Haemorrhage
     Dosage: 1900 INTERNATIONAL UNIT
     Route: 050
  2. VONICOG ALFA [Suspect]
     Active Substance: VONICOG ALFA
     Dosage: 1900 INTERNATIONAL UNIT
     Route: 050

REACTIONS (2)
  - Haemorrhage [Not Recovered/Not Resolved]
  - Peripheral swelling [Unknown]

NARRATIVE: CASE EVENT DATE: 20240312
